FAERS Safety Report 7400842-4 (Version None)
Quarter: 2011Q2

REPORT INFORMATION
  Report Type: 
  Country: None (occurrence: None)
  Receive Date: 20110407
  Receipt Date: 20110328
  Transmission Date: 20111010
  Serious: Yes (Hospitalization)
  Sender: FDA-Public Use
  Company Number: PHHY2011IT26969

PATIENT
  Sex: Male

DRUGS (1)
  1. AMOXICILLIN+CLAVULANATE SANDOZ [Suspect]
     Indication: TOOTH ABSCESS
     Dosage: 1 G, QD
     Route: 048
     Dates: start: 20110305, end: 20110305

REACTIONS (1)
  - ERYTHRODERMIC PSORIASIS [None]
